FAERS Safety Report 11115323 (Version 3)
Quarter: 2020Q4

REPORT INFORMATION
  Report Type: Report from Study
  Country: JP (occurrence: JP)
  Receive Date: 20150515
  Receipt Date: 20201119
  Transmission Date: 20210113
  Serious: Yes (Other)
  Sender: FDA-Public Use
  Company Number: JP-BRISTOL-MYERS SQUIBB COMPANY-BMS-2015-029211

PATIENT
  Age: 80 Year
  Sex: Male

DRUGS (1)
  1. CETUXIMAB. [Suspect]
     Active Substance: CETUXIMAB
     Indication: SQUAMOUS CELL CARCINOMA OF HEAD AND NECK
     Dosage: UNK
     Route: 041
     Dates: start: 20141125, end: 20141216

REACTIONS (16)
  - Aspiration [Recovered/Resolved]
  - Dysphagia [Recovered/Resolved]
  - Alanine aminotransferase increased [Recovered/Resolved]
  - C-reactive protein increased [Recovering/Resolving]
  - Blood alkaline phosphatase increased [Not Recovered/Not Resolved]
  - Pneumonia [Recovered/Resolved]
  - Radiation skin injury [Recovered/Resolved]
  - Pharyngeal inflammation [Recovered/Resolved]
  - Aspartate aminotransferase increased [Recovered/Resolved]
  - Hypocalcaemia [Recovering/Resolving]
  - Dry skin [Recovering/Resolving]
  - Stomatitis [Unknown]
  - Dry mouth [Recovering/Resolving]
  - Pyrexia [Recovered/Resolved]
  - Blood lactate dehydrogenase increased [Recovered/Resolved]
  - Mucosal infection [Recovered/Resolved]

NARRATIVE: CASE EVENT DATE: 20141128
